FAERS Safety Report 5624767-X (Version None)
Quarter: 2008Q1

REPORT INFORMATION
  Report Type: 
  Country: None (occurrence: None)
  Receive Date: 20080213
  Receipt Date: 20080208
  Transmission Date: 20080703
  Serious: No
  Sender: FDA-Public Use
  Company Number: NL-BAXTER-2007BH008795

PATIENT
  Age: 15 Year
  Sex: Male

DRUGS (1)
  1. ADVATE [Suspect]
     Indication: FACTOR VIII DEFICIENCY
     Route: 042
     Dates: start: 20071001

REACTIONS (3)
  - CHILLS [None]
  - FATIGUE [None]
  - INFECTION [None]
